FAERS Safety Report 21508544 (Version 1)
Quarter: 2022Q4

REPORT INFORMATION
  Report Type: Spontaneous
  Country: US (occurrence: None)
  Receive Date: 20221026
  Receipt Date: 20221026
  Transmission Date: 20230112
  Serious: Yes (Death)
  Sender: FDA-Public Use
  Company Number: None

PATIENT
  Age: 70 Year
  Sex: Male
  Weight: 78.02 kg

DRUGS (8)
  1. TRELSTAR [Suspect]
     Active Substance: TRIPTORELIN PAMOATE
     Indication: Prostate cancer
     Dosage: OTHER FREQUENCY : Q3MONTSH;?
     Route: 030
     Dates: start: 20201009, end: 20221010
  2. AMLODIPINE-BESY-BENAZEPIL HCL [Concomitant]
  3. APIXABAN [Concomitant]
     Active Substance: APIXABAN
  4. ISOSORBIDE [Concomitant]
     Active Substance: ISOSORBIDE
  5. LEVETIRACETAM [Concomitant]
     Active Substance: LEVETIRACETAM
  6. LIPITOR [Concomitant]
     Active Substance: ATORVASTATIN CALCIUM
  7. LISINOPRIL [Concomitant]
     Active Substance: LISINOPRIL
  8. TOPIRAMATE [Concomitant]
     Active Substance: TOPIRAMATE

REACTIONS (1)
  - Death [None]

NARRATIVE: CASE EVENT DATE: 20221010
